FAERS Safety Report 13558537 (Version 1)
Quarter: 2017Q2

REPORT INFORMATION
  Report Type: Spontaneous
  Country: US (occurrence: US)
  Receive Date: 20170518
  Receipt Date: 20170518
  Transmission Date: 20170830
  Serious: No
  Sender: FDA-Public Use
  Company Number: US-009507513-1705USA006593

PATIENT
  Age: 24 Year
  Sex: Female
  Weight: 133.33 kg

DRUGS (1)
  1. NEXPLANON [Suspect]
     Active Substance: ETONOGESTREL
     Indication: CONTRACEPTION
     Dosage: 68 MG (1 SINGLE ROD), UNK
     Route: 059
     Dates: start: 20170324, end: 20170511

REACTIONS (3)
  - Limb injury [Recovered/Resolved]
  - Medical device site discomfort [Recovered/Resolved]
  - Device kink [Recovered/Resolved]

NARRATIVE: CASE EVENT DATE: 2017
